FAERS Safety Report 9761546 (Version 1)
Quarter: 2013Q4

REPORT INFORMATION
  Report Type: Spontaneous
  Country: US (occurrence: US)
  Receive Date: 20131216
  Receipt Date: 20131216
  Transmission Date: 20140711
  Serious: No
  Sender: FDA-Public Use
  Company Number: US-ABBVIE-13P-163-1153198-00

PATIENT
  Sex: Female

DRUGS (5)
  1. PROGESTERONE [Suspect]
     Indication: PROGESTERONE DECREASED
     Dosage: DAILY FOR 12 DAYS IN EACH 28 DAY CYCLE
     Dates: start: 20130501
  2. ESTRADIOL TRANSDERMAL [Concomitant]
     Indication: PRODUCT USED FOR UNKNOWN INDICATION
  3. PANTOPRAZOLE [Concomitant]
     Indication: PRODUCT USED FOR UNKNOWN INDICATION
  4. QVAR [Concomitant]
     Indication: PRODUCT USED FOR UNKNOWN INDICATION
  5. PROAIR [Concomitant]

REACTIONS (1)
  - Constipation [Not Recovered/Not Resolved]
